FAERS Safety Report 7287462-X (Version None)
Quarter: 2011Q1

REPORT INFORMATION
  Report Type: 
  Country: None (occurrence: None)
  Receive Date: 20110211
  Receipt Date: 20110203
  Transmission Date: 20110831
  Serious: Yes (Other)
  Sender: FDA-Public Use
  Company Number: US-JNJFOC-20110102705

PATIENT
  Sex: Male
  Weight: 64.86 kg

DRUGS (7)
  1. TRAMADOL HCL [Concomitant]
     Indication: BREAKTHROUGH PAIN
     Route: 048
  2. FENTANYL-100 [Suspect]
     Indication: ARTHRALGIA
     Dosage: NDC#: 0781-7241-55
     Route: 062
  3. FENTANYL-100 [Suspect]
     Dosage: NDC#: 0781-7242-55
     Route: 062
  4. FENTANYL-100 [Suspect]
     Indication: ARTHRALGIA
     Route: 062
  5. FENTANYL-100 [Suspect]
     Indication: BACK PAIN
     Dosage: NDC#: 0781-7241-55
     Route: 062
  6. FENTANYL-100 [Suspect]
     Dosage: NDC#: 0781-7242-55
     Route: 062
  7. FENTANYL-100 [Suspect]
     Indication: BACK PAIN
     Route: 062

REACTIONS (8)
  - CONSTIPATION [None]
  - SEPSIS [None]
  - WITHDRAWAL SYNDROME [None]
  - MUSCLE TWITCHING [None]
  - ADVERSE EVENT [None]
  - INSOMNIA [None]
  - ABNORMAL BEHAVIOUR [None]
  - WEIGHT INCREASED [None]
